FAERS Safety Report 22634896 (Version 1)
Quarter: 2023Q2

REPORT INFORMATION
  Report Type: Spontaneous
  Country: US (occurrence: None)
  Receive Date: 20230622
  Receipt Date: 20230622
  Transmission Date: 20230722
  Serious: Yes (Other)
  Sender: FDA-Public Use
  Company Number: None

PATIENT
  Age: 65 Year
  Sex: Male
  Weight: 88.2 kg

DRUGS (3)
  1. PRALUENT [Suspect]
     Active Substance: ALIROCUMAB
     Indication: Blood cholesterol increased
     Dosage: OTHER QUANTITY : 1 INJECTION(S);?
     Route: 058
     Dates: start: 20230414, end: 20230604
  2. ZETIA [Concomitant]
     Active Substance: EZETIMIBE
  3. ASPIRIN [Concomitant]
     Active Substance: ASPIRIN

REACTIONS (4)
  - Dizziness [None]
  - Fatigue [None]
  - Brain fog [None]
  - Therapy interrupted [None]

NARRATIVE: CASE EVENT DATE: 20230420
